FAERS Safety Report 16337071 (Version 1)
Quarter: 2019Q2

REPORT INFORMATION
  Report Type: Spontaneous
  Country: US (occurrence: US)
  Receive Date: 20190415
  Receipt Date: 20190415
  Transmission Date: 20190711
  Serious: No
  Sender: FDA-Public Use
  Company Number: None

PATIENT
  Age: 57 Year
  Sex: Female

DRUGS (1)
  1. LEDIPASVIR/SOFOSBUVIR 90-400MG [Suspect]
     Active Substance: LEDIPASVIR\SOFOSBUVIR
     Indication: CHRONIC HEPATITIS C
     Route: 048
     Dates: start: 20190222

REACTIONS (2)
  - Loss of personal independence in daily activities [None]
  - Fatigue [None]

NARRATIVE: CASE EVENT DATE: 20190415
